FAERS Safety Report 5626736-2 (Version None)
Quarter: 2008Q1

REPORT INFORMATION
  Report Type: 
  Country: None (occurrence: None)
  Receive Date: 20080214
  Receipt Date: 20080205
  Transmission Date: 20080703
  Serious: Yes (Other)
  Sender: FDA-Public Use
  Company Number: GB-PFIZER INC-2008007174

PATIENT
  Sex: Female

DRUGS (3)
  1. ISTIN [Suspect]
     Indication: HYPERTENSION
     Route: 048
  2. OMEPRAZOLE [Concomitant]
     Dosage: DAILY DOSE:10MG
     Route: 048
  3. GAVISCON [Concomitant]
     Indication: DYSPEPSIA
     Dosage: TEXT:10 ML-FREQ:AS NEEDED
     Route: 048

REACTIONS (4)
  - HYPERSENSITIVITY [None]
  - PHARYNGOLARYNGEAL PAIN [None]
  - REFLUX OESOPHAGITIS [None]
  - SKIN INFLAMMATION [None]
